FAERS Safety Report 19455976 (Version 2)
Quarter: 2024Q1

REPORT INFORMATION
  Report Type: Report from Study
  Country: FI (occurrence: None)
  Receive Date: 20210624
  Receipt Date: 20240308
  Transmission Date: 20240410
  Serious: Yes (Death)
  Sender: FDA-Public Use
  Company Number: 2021A551073

PATIENT
  Age: 92 Year
  Sex: Female

DRUGS (4)
  1. QUETIAPINE [Suspect]
     Active Substance: QUETIAPINE
     Route: 048
  2. PREGABALIN [Suspect]
     Active Substance: PREGABALIN
     Route: 065
  3. WARFARIN [Concomitant]
     Active Substance: WARFARIN
  4. HYDROCHLOROTHIAZIDE [Concomitant]
     Active Substance: HYDROCHLOROTHIAZIDE

REACTIONS (1)
  - Accidental poisoning [Fatal]
